FAERS Safety Report 9631828 (Version 1)
Quarter: 2013Q4

REPORT INFORMATION
  Report Type: Spontaneous
  Country: US (occurrence: US)
  Receive Date: 20131018
  Receipt Date: 20131018
  Transmission Date: 20140711
  Serious: Yes (Death)
  Sender: FDA-Public Use
  Company Number: US-TAKEDA-2013TUS001557

PATIENT
  Sex: 0

DRUGS (4)
  1. KAZANO [Suspect]
     Indication: TYPE 2 DIABETES MELLITUS
     Dosage: 12.5/500 MG, BID
     Route: 048
     Dates: start: 20130801, end: 20130929
  2. KAZANO [Suspect]
     Dosage: 15/1000 MG, BID
     Route: 048
     Dates: start: 20130930, end: 20131015
  3. LANTUS [Concomitant]
     Indication: TYPE 2 DIABETES MELLITUS
     Dosage: 50 UNITS, BID
  4. XARELTO [Concomitant]

REACTIONS (2)
  - Death [Fatal]
  - Overdose [Unknown]
